FAERS Safety Report 13768290 (Version 1)
Quarter: 2017Q3

REPORT INFORMATION
  Report Type: Spontaneous
  Country: AT (occurrence: AT)
  Receive Date: 20170719
  Receipt Date: 20170719
  Transmission Date: 20171127
  Serious: Yes (Other)
  Sender: FDA-Public Use
  Company Number: AT-TEVA-787160ISR

PATIENT
  Age: 36 Year
  Sex: Male

DRUGS (6)
  1. SEROQUEL [Concomitant]
     Active Substance: QUETIAPINE FUMARATE
     Dates: start: 20161107
  2. BRINTELLIX [Concomitant]
     Active Substance: VORTIOXETINE HYDROBROMIDE
     Dates: start: 20161026, end: 20161124
  3. IXEL [Suspect]
     Active Substance: MILNACIPRAN HYDROCHLORIDE
     Route: 065
     Dates: start: 20161124, end: 20161128
  4. MIRTABENE [Suspect]
     Active Substance: MIRTAZAPINE
     Route: 065
     Dates: start: 20161123, end: 20161130
  5. BRINTELLIX [Concomitant]
     Active Substance: VORTIOXETINE HYDROBROMIDE
     Dates: start: 20161125, end: 20161130
  6. PREGABALIN. [Suspect]
     Active Substance: PREGABALIN
     Route: 065
     Dates: start: 20161123

REACTIONS (1)
  - Anorgasmia [Recovered/Resolved]

NARRATIVE: CASE EVENT DATE: 20161125
